FAERS Safety Report 12371287 (Version 1)
Quarter: 2016Q2

REPORT INFORMATION
  Report Type: Spontaneous
  Country: US (occurrence: US)
  Receive Date: 20160516
  Receipt Date: 20160516
  Transmission Date: 20160815
  Serious: No
  Sender: FDA-Public Use
  Company Number: US-MYLANLABS-2016M1012103

PATIENT
  Sex: Female

DRUGS (2)
  1. ACEBUTOLOL [Suspect]
     Active Substance: ACEBUTOLOL
     Indication: CARDIAC DISORDER
     Dosage: UNK
  2. ACEBUTOLOL [Suspect]
     Active Substance: ACEBUTOLOL
     Indication: OFF LABEL USE

REACTIONS (2)
  - Therapeutic response changed [Unknown]
  - Drug intolerance [Unknown]
